FAERS Safety Report 25675791 (Version 1)
Quarter: 2025Q3

REPORT INFORMATION
  Report Type: Spontaneous
  Country: AR (occurrence: AR)
  Receive Date: 20250813
  Receipt Date: 20250813
  Transmission Date: 20251020
  Serious: Yes (Other)
  Sender: SANOFI AVENTIS
  Company Number: AR-SA-2025SA234437

PATIENT
  Age: 45 Year
  Sex: Male

DRUGS (2)
  1. DUPIXENT [Suspect]
     Active Substance: DUPILUMAB
     Indication: Dermatitis atopic
     Dates: start: 20250719, end: 20250719
  2. DUPIXENT [Suspect]
     Active Substance: DUPILUMAB
     Dates: start: 20250802

REACTIONS (2)
  - Dermatitis exfoliative generalised [Unknown]
  - Erythema [Unknown]

NARRATIVE: CASE EVENT DATE: 20250719
